FAERS Safety Report 6809782-2 (Version None)
Quarter: 2010Q2

REPORT INFORMATION
  Report Type: 
  Country: None (occurrence: None)
  Receive Date: 20100630
  Receipt Date: 20100623
  Transmission Date: 20101027
  Serious: Yes (Other)
  Sender: FDA-Public Use
  Company Number: US-BAXTER-2010BH016873

PATIENT
  Age: 44 Year
  Sex: Male

DRUGS (4)
  1. HEPARIN [Suspect]
     Indication: PROPHYLAXIS
     Route: 040
  2. HEPARIN [Suspect]
  3. ASPIRIN [Concomitant]
     Indication: DRUG USE FOR UNKNOWN INDICATION
     Route: 065
  4. LOVENOX [Concomitant]
     Indication: DRUG USE FOR UNKNOWN INDICATION
     Route: 065

REACTIONS (3)
  - SKIN FLAP NECROSIS [None]
  - THROMBOCYTOPENIA [None]
  - THROMBOSIS [None]
